FAERS Safety Report 5890252-3 (Version None)
Quarter: 2008Q3

REPORT INFORMATION
  Report Type: 
  Country: None (occurrence: None)
  Receive Date: 20080919
  Receipt Date: 20080909
  Transmission Date: 20090109
  Serious: Yes (Hospitalization)
  Sender: FDA-Public Use
  Company Number: PT-PFIZER INC-2008076626

PATIENT
  Sex: Male

DRUGS (4)
  1. ZITHROMAX [Suspect]
     Route: 048
  2. INDERAL [Concomitant]
     Route: 048
     Dates: start: 20050101
  3. ACETYL SALICYLIC ACID COMPOUND TAB [Concomitant]
     Route: 048
     Dates: start: 20050101
  4. SIMVASTATIN [Concomitant]
     Route: 048
     Dates: start: 20050101

REACTIONS (1)
  - APHTHOUS STOMATITIS [None]
